FAERS Safety Report 8996334 (Version 2)
Quarter: 2013Q1

REPORT INFORMATION
  Report Type: Spontaneous
  Country: GB (occurrence: GB)
  Receive Date: 20130104
  Receipt Date: 20130109
  Transmission Date: 20140127
  Serious: Yes (Life-Threatening, Hospitalization)
  Sender: FDA-Public Use
  Company Number: GB-RANBAXY-2012R1-63688

PATIENT
  Age: 6 Month
  Sex: Female
  Weight: 7.99 kg

DRUGS (5)
  1. RANITIDINE [Suspect]
     Indication: PROPHYLAXIS
     Dosage: 16 MG, BID
     Route: 048
     Dates: start: 20121123
  2. RANITIDINE [Suspect]
     Indication: PROPHYLAXIS
     Dosage: 30 MG, BID
     Route: 048
     Dates: start: 20121129, end: 20121203
  3. LACTULOSE [Concomitant]
     Indication: PRODUCT USED FOR UNKNOWN INDICATION
     Dosage: UNK
     Route: 065
  4. SYNACTHEN DEPOT [Concomitant]
     Indication: INFANTILE SPASMS
     Dosage: UNK
     Route: 030
  5. VIGABATRIN [Concomitant]
     Indication: INFANTILE SPASMS
     Dosage: UNK
     Route: 048

REACTIONS (3)
  - Bradycardia [Recovered/Resolved]
  - Irritability [Unknown]
  - Pallor [Unknown]
